FAERS Safety Report 4965250-4 (Version None)
Quarter: 2006Q1

REPORT INFORMATION
  Report Type: 
  Country: None (occurrence: None)
  Receive Date: 20060130
  Receipt Date: 20050510
  Transmission Date: 20060701
  Serious: No
  Sender: FDA-Public Use
  Company Number: COT_0265_2005

PATIENT
  Age: 42 Year
  Sex: Female

DRUGS (3)
  1. VENTAVIS [Suspect]
     Indication: PULMONARY HYPERTENSION
     Dosage: 2.5 MCG ONCE IH
     Route: 055
     Dates: start: 20050408, end: 20050408
  2. VENTAVIS [Suspect]
     Indication: PULMONARY HYPERTENSION
     Dosage: 5 MCG ONCE 6 TO 9X / DAY IH
     Route: 055
     Dates: start: 20050408, end: 20050510
  3. BOSENTAN [Concomitant]

REACTIONS (3)
  - DYSPNOEA [None]
  - RASH [None]
  - SOMNOLENCE [None]
